FAERS Safety Report 8223487-5 (Version None)
Quarter: 2012Q1

REPORT INFORMATION
  Report Type: 
  Country: None (occurrence: None)
  Receive Date: 20120307
  Receipt Date: 20101217
  Transmission Date: 20120608
  Serious: Yes (Other)
  Sender: FDA-Public Use
  Company Number: PHHY2010US86727

PATIENT
  Age: 62 Year
  Sex: Female

DRUGS (1)
  1. AFINITOR [Suspect]
     Dosage: 5 MG, DAILY, ORAL
     Route: 048

REACTIONS (2)
  - RASH MACULO-PAPULAR [None]
  - PRURITUS [None]
